FAERS Safety Report 11376259 (Version 1)
Quarter: 2015Q3

REPORT INFORMATION
  Report Type: Report from Study
  Country: US (occurrence: US)
  Receive Date: 20150813
  Receipt Date: 20150813
  Transmission Date: 20151125
  Serious: Yes (Death)
  Sender: FDA-Public Use
  Company Number: US-ASTELLAS-2015US027390

PATIENT
  Sex: Female

DRUGS (74)
  1. HERCEPTIN [Suspect]
     Active Substance: TRASTUZUMAB
     Route: 042
     Dates: start: 20050901
  2. HERCEPTIN [Suspect]
     Active Substance: TRASTUZUMAB
     Dosage: 320 MG, UNK
     Route: 065
     Dates: start: 20060302
  3. HERCEPTIN [Suspect]
     Active Substance: TRASTUZUMAB
     Dosage: 320 MG, UNK
     Route: 042
     Dates: start: 20060413
  4. HERCEPTIN [Suspect]
     Active Substance: TRASTUZUMAB
     Dosage: 262 MG, UNK
     Route: 042
     Dates: start: 20060518
  5. HERCEPTIN [Suspect]
     Active Substance: TRASTUZUMAB
     Dosage: 132 MG, UNK
     Route: 042
     Dates: start: 20060915
  6. HERCEPTIN [Suspect]
     Active Substance: TRASTUZUMAB
     Dosage: 132 MG, UNK
     Route: 042
     Dates: start: 20061215
  7. HERCEPTIN [Suspect]
     Active Substance: TRASTUZUMAB
     Dosage: 132 MG, UNK
     Route: 042
     Dates: start: 20061222
  8. HERCEPTIN [Suspect]
     Active Substance: TRASTUZUMAB
     Dosage: 132 MG, UNK
     Route: 042
     Dates: start: 20070105
  9. HERCEPTIN [Suspect]
     Active Substance: TRASTUZUMAB
     Route: 042
     Dates: start: 20050922
  10. HERCEPTIN [Suspect]
     Active Substance: TRASTUZUMAB
     Dosage: 320 MG, UNK
     Route: 042
     Dates: start: 20051020
  11. HERCEPTIN [Suspect]
     Active Substance: TRASTUZUMAB
     Dosage: 320 MG, UNK
     Route: 042
     Dates: start: 20060309
  12. HERCEPTIN [Suspect]
     Active Substance: TRASTUZUMAB
     Dosage: 132 MG, UNK
     Route: 042
     Dates: start: 20060929
  13. HERCEPTIN [Suspect]
     Active Substance: TRASTUZUMAB
     Route: 042
     Dates: start: 20061110
  14. AVASTIN [Suspect]
     Active Substance: BEVACIZUMAB
     Route: 042
     Dates: start: 20060621
  15. HERCEPTIN [Suspect]
     Active Substance: TRASTUZUMAB
     Dosage: 320 MG, UNK
     Route: 042
     Dates: start: 20051027
  16. HERCEPTIN [Suspect]
     Active Substance: TRASTUZUMAB
     Dosage: 262 MG, UNK
     Route: 042
     Dates: start: 20060601
  17. HERCEPTIN [Suspect]
     Active Substance: TRASTUZUMAB
     Dosage: 132 MG, UNK
     Route: 042
     Dates: start: 20060621
  18. HERCEPTIN [Suspect]
     Active Substance: TRASTUZUMAB
     Dosage: 132 MG, UNK
     Route: 042
     Dates: start: 20060630
  19. HERCEPTIN [Suspect]
     Active Substance: TRASTUZUMAB
     Dosage: 132 MG, UNK
     Route: 042
     Dates: start: 20060825
  20. CARBOPLATIN. [Concomitant]
     Active Substance: CARBOPLATIN
     Route: 065
  21. AVASTIN [Suspect]
     Active Substance: BEVACIZUMAB
     Indication: BREAST CANCER FEMALE
     Route: 042
  22. AVASTIN [Suspect]
     Active Substance: BEVACIZUMAB
     Route: 042
     Dates: start: 20061020
  23. HERCEPTIN [Suspect]
     Active Substance: TRASTUZUMAB
     Indication: BREAST CANCER FEMALE
     Dosage: UNK, UNKNOWN FREQ.
     Route: 042
  24. HERCEPTIN [Suspect]
     Active Substance: TRASTUZUMAB
     Route: 042
     Dates: start: 20050818
  25. HERCEPTIN [Suspect]
     Active Substance: TRASTUZUMAB
     Dosage: 262 MG, UNK
     Route: 042
     Dates: start: 20060504
  26. HERCEPTIN [Suspect]
     Active Substance: TRASTUZUMAB
     Dosage: 132 MG, UNK
     Route: 042
     Dates: start: 20061006
  27. HERCEPTIN [Suspect]
     Active Substance: TRASTUZUMAB
     Dosage: 132 MG, UNK
     Route: 042
     Dates: start: 20061027
  28. FLUOROURACIL. [Concomitant]
     Active Substance: FLUOROURACIL
     Indication: PRODUCT USED FOR UNKNOWN INDICATION
     Route: 065
  29. NAVELBINE [Concomitant]
     Active Substance: VINORELBINE TARTRATE
     Indication: PRODUCT USED FOR UNKNOWN INDICATION
     Dosage: UNK UNK, UNKNOWN FREQ.
     Route: 065
  30. AVASTIN [Suspect]
     Active Substance: BEVACIZUMAB
     Route: 042
     Dates: start: 20061006
  31. HERCEPTIN [Suspect]
     Active Substance: TRASTUZUMAB
     Route: 042
     Dates: start: 20050811
  32. HERCEPTIN [Suspect]
     Active Substance: TRASTUZUMAB
     Route: 042
     Dates: start: 20050825
  33. HERCEPTIN [Suspect]
     Active Substance: TRASTUZUMAB
     Dosage: 320 MG, UNK
     Route: 042
     Dates: start: 20051013
  34. HERCEPTIN [Suspect]
     Active Substance: TRASTUZUMAB
     Route: 042
     Dates: start: 20060427
  35. HERCEPTIN [Suspect]
     Active Substance: TRASTUZUMAB
     Dosage: 262 MG, UNK
     Route: 042
     Dates: start: 20060511
  36. HERCEPTIN [Suspect]
     Active Substance: TRASTUZUMAB
     Dosage: 262 MG, UNK
     Route: 042
     Dates: start: 20060525
  37. PROCRIT [Concomitant]
     Active Substance: ERYTHROPOIETIN
     Indication: PRODUCT USED FOR UNKNOWN INDICATION
     Dosage: UNK UNK, UNKNOWN FREQ. 60 K
     Route: 065
  38. CARBOPLATIN. [Concomitant]
     Active Substance: CARBOPLATIN
     Indication: PRODUCT USED FOR UNKNOWN INDICATION
     Route: 065
  39. BENADRYL [Concomitant]
     Active Substance: DIPHENHYDRAMINE HYDROCHLORIDE
     Indication: PRODUCT USED FOR UNKNOWN INDICATION
     Route: 065
  40. HERCEPTIN [Suspect]
     Active Substance: TRASTUZUMAB
     Route: 042
     Dates: start: 20050929
  41. HERCEPTIN [Suspect]
     Active Substance: TRASTUZUMAB
     Dosage: 320 MG, UNK
     Route: 042
     Dates: start: 20051109
  42. HERCEPTIN [Suspect]
     Active Substance: TRASTUZUMAB
     Dosage: 320 MG, UNK
     Route: 042
     Dates: start: 20060223
  43. HERCEPTIN [Suspect]
     Active Substance: TRASTUZUMAB
     Dosage: 320 MG, UNK
     Route: 042
     Dates: start: 20060330
  44. HERCEPTIN [Suspect]
     Active Substance: TRASTUZUMAB
     Dosage: 320 MG, UNK
     Route: 042
     Dates: start: 20060406
  45. HERCEPTIN [Suspect]
     Active Substance: TRASTUZUMAB
     Dosage: 132 MG, UNK
     Route: 042
     Dates: start: 20060728
  46. HERCEPTIN [Suspect]
     Active Substance: TRASTUZUMAB
     Dosage: 132 MG, UNK
     Route: 042
     Dates: start: 20060811
  47. HERCEPTIN [Suspect]
     Active Substance: TRASTUZUMAB
     Dosage: 132 MG, UNK
     Route: 042
     Dates: start: 20060908
  48. HERCEPTIN [Suspect]
     Active Substance: TRASTUZUMAB
     Dosage: 132 MG, UNK
     Route: 042
     Dates: start: 20061117
  49. TAXOTERE [Concomitant]
     Active Substance: DOCETAXEL
     Indication: PRODUCT USED FOR UNKNOWN INDICATION
     Route: 065
  50. CARBOPLATIN. [Concomitant]
     Active Substance: CARBOPLATIN
     Route: 065
  51. CARBOPLATIN. [Concomitant]
     Active Substance: CARBOPLATIN
     Route: 065
  52. AVASTIN [Suspect]
     Active Substance: BEVACIZUMAB
     Route: 042
     Dates: start: 20060922
  53. HERCEPTIN [Suspect]
     Active Substance: TRASTUZUMAB
     Route: 042
     Dates: start: 20050915
  54. HERCEPTIN [Suspect]
     Active Substance: TRASTUZUMAB
     Dosage: 320 MG, UNK
     Route: 042
     Dates: start: 20060316
  55. HERCEPTIN [Suspect]
     Active Substance: TRASTUZUMAB
     Dosage: 320 MG, UNK
     Route: 042
     Dates: start: 20060420
  56. HERCEPTIN [Suspect]
     Active Substance: TRASTUZUMAB
     Dosage: 132 MG, UNK
     Route: 042
     Dates: start: 20060707
  57. HERCEPTIN [Suspect]
     Active Substance: TRASTUZUMAB
     Dosage: 132 MG,
     Route: 042
     Dates: start: 20061020
  58. ABRAXANE [Concomitant]
     Active Substance: PACLITAXEL
     Indication: PRODUCT USED FOR UNKNOWN INDICATION
     Route: 065
  59. ARANESP [Concomitant]
     Active Substance: DARBEPOETIN ALFA
     Indication: PRODUCT USED FOR UNKNOWN INDICATION
     Route: 065
  60. RED BLOOD CELLS [Concomitant]
     Active Substance: HUMAN RED BLOOD CELL
     Indication: PRODUCT USED FOR UNKNOWN INDICATION
     Dosage: UNK UNK, UNKNOWN FREQ.2 UNITS NOT REPORTED
     Route: 065
  61. ERLOTINIB [Suspect]
     Active Substance: ERLOTINIB
     Indication: BREAST CANCER FEMALE
     Dosage: UNK, UNKNOWN FREQ.
     Route: 065
  62. AVASTIN [Suspect]
     Active Substance: BEVACIZUMAB
     Route: 042
     Dates: start: 20060707
  63. AVASTIN [Suspect]
     Active Substance: BEVACIZUMAB
     Route: 042
     Dates: start: 20061102
  64. AVASTIN [Suspect]
     Active Substance: BEVACIZUMAB
  65. HERCEPTIN [Suspect]
     Active Substance: TRASTUZUMAB
     Route: 042
     Dates: start: 20050908
  66. HERCEPTIN [Suspect]
     Active Substance: TRASTUZUMAB
     Dosage: 320 MG, UNK
     Route: 042
     Dates: start: 20051005
  67. HERCEPTIN [Suspect]
     Active Substance: TRASTUZUMAB
     Dosage: 132 MG, UNK
     Route: 042
     Dates: start: 20060922
  68. HERCEPTIN [Suspect]
     Active Substance: TRASTUZUMAB
     Dosage: 132 MG, UNK
     Route: 042
     Dates: start: 20061013
  69. HERCEPTIN [Suspect]
     Active Substance: TRASTUZUMAB
     Dosage: 132 MG, UNK
     Route: 042
     Dates: start: 20061102
  70. HERCEPTIN [Suspect]
     Active Substance: TRASTUZUMAB
     Dosage: 132 MG, UNK
     Route: 042
     Dates: start: 20061201
  71. HERCEPTIN [Suspect]
     Active Substance: TRASTUZUMAB
     Dosage: 132 MG, UNK
     Route: 042
     Dates: start: 20061208
  72. ZOMETA [Concomitant]
     Active Substance: ZOLEDRONIC ACID
     Indication: PRODUCT USED FOR UNKNOWN INDICATION
     Route: 065
  73. NEULASTA [Concomitant]
     Active Substance: PEGFILGRASTIM
     Indication: PRODUCT USED FOR UNKNOWN INDICATION
     Route: 065
  74. CARBOPLATIN. [Concomitant]
     Active Substance: CARBOPLATIN
     Route: 065

REACTIONS (2)
  - Death [Fatal]
  - Off label use [Unknown]
